FAERS Safety Report 23467363 (Version 1)
Quarter: 2024Q1

REPORT INFORMATION
  Report Type: Spontaneous
  Country: US (occurrence: None)
  Receive Date: 20240131
  Receipt Date: 20240131
  Transmission Date: 20240410
  Serious: Yes (Hospitalization)
  Sender: FDA-Public Use
  Company Number: None

PATIENT
  Age: 29 Year
  Weight: 73.94 kg

DRUGS (1)
  1. AVSOLA [Suspect]
     Active Substance: INFLIXIMAB-AXXQ
     Indication: Colitis ulcerative
     Dosage: OTHER FREQUENCY : WEEKS 0,2,6 THEN 8;?
     Route: 041
     Dates: start: 20240117, end: 20240117

REACTIONS (6)
  - Infusion related reaction [None]
  - Urticaria [None]
  - Arthralgia [None]
  - Movement disorder [None]
  - Hypotension [None]
  - Dehydration [None]

NARRATIVE: CASE EVENT DATE: 20240125
